FAERS Safety Report 8211747-3 (Version None)
Quarter: 2012Q1

REPORT INFORMATION
  Report Type: 
  Country: None (occurrence: None)
  Receive Date: 20120315
  Receipt Date: 20120306
  Transmission Date: 20120608
  Serious: Yes (Hospitalization, Other)
  Sender: FDA-Public Use
  Company Number: DE-JNJFOC-20111208701

PATIENT
  Age: 37 Year
  Sex: Female

DRUGS (6)
  1. RISPERDAL [Suspect]
     Indication: SCHIZOAFFECTIVE DISORDER
     Route: 048
     Dates: end: 20101001
  2. LITHIUM CARBONATE [Concomitant]
     Route: 048
  3. RISPERDAL [Suspect]
     Route: 048
  4. VENLAFAXINE [Concomitant]
     Indication: DEPRESSION
     Route: 048
     Dates: start: 20111201
  5. VENLAFAXINE [Concomitant]
     Route: 048
     Dates: start: 20081101, end: 20101101
  6. RISPERDAL [Suspect]
     Route: 048

REACTIONS (5)
  - MASTITIS [None]
  - HYPERPROLACTINAEMIA [None]
  - BREAST HAEMORRHAGE [None]
  - GALACTORRHOEA [None]
  - BENIGN BREAST NEOPLASM [None]
